FAERS Safety Report 19821185 (Version 2)
Quarter: 2024Q1

REPORT INFORMATION
  Report Type: Spontaneous
  Country: US (occurrence: US)
  Receive Date: 20210913
  Receipt Date: 20240201
  Transmission Date: 20240410
  Serious: No
  Sender: FDA-Public Use
  Company Number: US-NOVEN PHARMACEUTICALS, INC.-2021US001166

PATIENT
  Age: 56 Year
  Sex: Female

DRUGS (7)
  1. COMBIPATCH [Suspect]
     Active Substance: ESTRADIOL\NORETHINDRONE ACETATE
     Indication: Hot flush
     Dosage: 0.05/0.14 MG, UNK
     Route: 062
     Dates: start: 202008
  2. COMBIPATCH [Suspect]
     Active Substance: ESTRADIOL\NORETHINDRONE ACETATE
     Indication: Night sweats
  3. COMBIPATCH [Suspect]
     Active Substance: ESTRADIOL\NORETHINDRONE ACETATE
     Indication: Insomnia
  4. COMBIPATCH [Suspect]
     Active Substance: ESTRADIOL\NORETHINDRONE ACETATE
     Indication: Off label use
  5. PREMARIN [Concomitant]
     Active Substance: ESTROGENS, CONJUGATED
     Indication: Hot flush
     Dosage: 1 MG, 2/WEEK
     Route: 067
     Dates: start: 202008
  6. PREMARIN [Concomitant]
     Active Substance: ESTROGENS, CONJUGATED
     Indication: Night sweats
  7. LANREOTIDE [Concomitant]
     Active Substance: LANREOTIDE
     Indication: Neoplasm malignant
     Dosage: UNK, MONTHLY
     Route: 065

REACTIONS (4)
  - Weight decreased [Not Recovered/Not Resolved]
  - Cardiac flutter [Recovering/Resolving]
  - Palpitations [Not Recovered/Not Resolved]
  - Therapeutic product ineffective [Recovering/Resolving]

NARRATIVE: CASE EVENT DATE: 20201201
